APPROVED DRUG PRODUCT: ISOSORBIDE DINITRATE
Active Ingredient: ISOSORBIDE DINITRATE
Strength: 20MG
Dosage Form/Route: TABLET;ORAL
Application: A087537 | Product #001 | TE Code: AB
Applicant: PH HEALTH LTD
Approved: Oct 2, 1987 | RLD: No | RS: No | Type: RX